FAERS Safety Report 11205964 (Version 1)
Quarter: 2015Q2

REPORT INFORMATION
  Report Type: Spontaneous
  Country: US (occurrence: None)
  Receive Date: 20150618
  Receipt Date: 20150618
  Transmission Date: 20150821
  Serious: No
  Sender: FDA-Public Use
  Company Number: None

PATIENT
  Age: 74 Year
  Sex: Male
  Weight: 104.33 kg

DRUGS (7)
  1. LASARTON [Concomitant]
  2. GLIPIZIDE ER [Suspect]
     Active Substance: GLIPIZIDE
     Indication: DIABETES MELLITUS INADEQUATE CONTROL
     Dosage: 1 PILL
     Route: 048
     Dates: start: 20150601, end: 20150614
  3. TRAGENTA [Concomitant]
  4. OMAPREZOLE [Concomitant]
  5. PIGLITAZONE [Concomitant]
  6. GLIPIZIDE XL [Concomitant]
     Active Substance: GLIPIZIDE
  7. LUMAGAN EYE DROP [Concomitant]

REACTIONS (5)
  - Formication [None]
  - Pruritus [None]
  - Reaction to colouring [None]
  - Product substitution issue [None]
  - Burning sensation [None]

NARRATIVE: CASE EVENT DATE: 20150601
